FAERS Safety Report 8346071-1 (Version None)
Quarter: 2012Q2

REPORT INFORMATION
  Report Type: 
  Country: None (occurrence: None)
  Receive Date: 20120509
  Receipt Date: 20120507
  Transmission Date: 20120825
  Serious: No
  Sender: FDA-Public Use
  Company Number: US-PFIZER INC-2012111330

PATIENT
  Sex: Female
  Weight: 44 kg

DRUGS (2)
  1. AZOR [Concomitant]
     Indication: HYPERTENSION
     Dosage: UNK
  2. NEURONTIN [Suspect]
     Indication: BACK PAIN
     Dosage: 200 MG, 1X/DAY
     Route: 048

REACTIONS (6)
  - FATIGUE [None]
  - AGITATION [None]
  - RESTLESSNESS [None]
  - COORDINATION ABNORMAL [None]
  - SOMNOLENCE [None]
  - DRUG INEFFECTIVE [None]
